FAERS Safety Report 9961846 (Version 1)
Quarter: 2014Q1

REPORT INFORMATION
  Report Type: Spontaneous
  Country: US (occurrence: None)
  Receive Date: 20140304
  Receipt Date: 20140304
  Transmission Date: 20141002
  Serious: Yes (Hospitalization)
  Sender: FDA-Public Use
  Company Number: None

PATIENT
  Age: 80 Year
  Sex: Male
  Weight: 62.14 kg

DRUGS (2)
  1. ROFLUMILAST [Suspect]
     Indication: HAEMATOLOGICAL MALIGNANCY
     Route: 048
     Dates: start: 20140128, end: 20140224
  2. NORMAL SALINE [Concomitant]

REACTIONS (1)
  - Renal failure acute [None]
